FAERS Safety Report 9141223 (Version 1)
Quarter: 2013Q1

REPORT INFORMATION
  Report Type: Spontaneous
  Country: US (occurrence: US)
  Receive Date: 20130305
  Receipt Date: 20130305
  Transmission Date: 20140127
  Serious: No
  Sender: FDA-Public Use
  Company Number: US-AMGEN-USASP2013008693

PATIENT
  Age: 55 Year
  Sex: Male

DRUGS (10)
  1. ENBREL [Suspect]
     Indication: RHEUMATOID ARTHRITIS
     Dosage: UNK
     Route: 058
     Dates: start: 201207
  2. ALLOPURINOL [Concomitant]
     Indication: GOUT
     Dosage: UNK
  3. MELOXICAM [Concomitant]
     Indication: RHEUMATOID ARTHRITIS
     Dosage: UNK
  4. NEXIUM                             /01479302/ [Concomitant]
     Dosage: UNK
  5. AZATHIOPRIN [Concomitant]
     Indication: RHEUMATOID ARTHRITIS
     Dosage: UNK
  6. METOPROLOL [Concomitant]
     Indication: HYPERTENSION
     Dosage: UNK
  7. CLONAZEPAM [Concomitant]
     Indication: RESTLESS LEGS SYNDROME
     Dosage: UNK
  8. PREDNISONE [Concomitant]
     Indication: RHEUMATOID ARTHRITIS
  9. ASPIRINE [Concomitant]
     Dosage: 81 MG, UNK
  10. COLCRYS [Concomitant]
     Dosage: UNK

REACTIONS (3)
  - Joint swelling [Unknown]
  - Oedema peripheral [Unknown]
  - Joint lock [Unknown]
